FAERS Safety Report 21739524 (Version 7)
Quarter: 2023Q2

REPORT INFORMATION
  Report Type: Spontaneous
  Country: JP (occurrence: JP)
  Receive Date: 20221216
  Receipt Date: 20230525
  Transmission Date: 20230722
  Serious: Yes (Hospitalization, Other)
  Sender: FDA-Public Use
  Company Number: JP-ASTELLAS-2022JP018429

PATIENT
  Age: 68 Year
  Sex: Male

DRUGS (14)
  1. PADCEV [Suspect]
     Active Substance: ENFORTUMAB VEDOTIN-EJFV
     Indication: Malignant neoplasm of renal pelvis
     Dosage: 1.0 MG/KG (80 MG), ONCE WEEKLY FOR 3 WEEKS CONTINUOUSLY, FOLLOWED BY WITHDRAWAL ON THE FOURTH WEEK
     Route: 041
     Dates: start: 20220905
  2. PADCEV [Suspect]
     Active Substance: ENFORTUMAB VEDOTIN-EJFV
     Route: 041
     Dates: start: 20221004
  3. PADCEV [Suspect]
     Active Substance: ENFORTUMAB VEDOTIN-EJFV
     Route: 041
     Dates: start: 20221115
  4. PADCEV [Suspect]
     Active Substance: ENFORTUMAB VEDOTIN-EJFV
     Dosage: 1.0 MG/KG (80 MG), ONCE WEEKLY FOR 3 WEEKS CONTINUOUSLY, FOLLOWED BY WITHDRAWAL ON THE FOURTH WEEK
     Route: 041
     Dates: start: 20221213
  5. PADCEV [Suspect]
     Active Substance: ENFORTUMAB VEDOTIN-EJFV
     Route: 041
     Dates: start: 20230117, end: 20230131
  6. LOXOPROFEN [Suspect]
     Active Substance: LOXOPROFEN
     Indication: Cancer pain
     Dosage: 60 UNK, ONCE DAILY
     Route: 048
  7. BISOPROLOL [Concomitant]
     Active Substance: BISOPROLOL
     Indication: Hypertension
     Route: 048
  8. AZOSEMIDE [Concomitant]
     Active Substance: AZOSEMIDE
     Indication: Oedema
     Dosage: 30 UNK, ONCE DAILY
     Route: 048
  9. FEBUXOSTAT [Concomitant]
     Active Substance: FEBUXOSTAT
     Indication: Hyperuricaemia
     Dosage: 60 UNK, ONCE DAILY
     Route: 048
  10. CLOPIDOGREL [Concomitant]
     Active Substance: CLOPIDOGREL BISULFATE
     Indication: Cerebral artery embolism
     Dosage: 75 UNK, ONCE DAILY
     Route: 048
  11. XARELTO [Concomitant]
     Active Substance: RIVAROXABAN
     Indication: Deep vein thrombosis
     Dosage: 10 UNK, ONCE DAILY
     Route: 048
  12. EURAX [Concomitant]
     Active Substance: CROTAMITON
     Indication: Rash pruritic
     Route: 065
     Dates: start: 20220914
  13. BETAMETHASONE DIPROPIONATE [Concomitant]
     Active Substance: BETAMETHASONE DIPROPIONATE
     Indication: Rash pruritic
     Route: 065
     Dates: start: 20220914
  14. EPINASTINE [Concomitant]
     Active Substance: EPINASTINE
     Indication: Rash pruritic
     Dosage: 1 DF, ONCE DAILY, 1?VDS
     Route: 065
     Dates: start: 20220914

REACTIONS (2)
  - Gastric ulcer haemorrhage [Recovered/Resolved]
  - Skin disorder [Recovered/Resolved]

NARRATIVE: CASE EVENT DATE: 20220914
